FAERS Safety Report 6218130-0 (Version None)
Quarter: 2009Q2

REPORT INFORMATION
  Report Type: 
  Country: None (occurrence: None)
  Receive Date: 20090608
  Receipt Date: 20090529
  Transmission Date: 20091009
  Serious: Yes (Death, Hospitalization, Other)
  Sender: FDA-Public Use
  Company Number: PHHY2009JP21658

PATIENT
  Sex: Male

DRUGS (2)
  1. ICL670A ICL+DISTAB [Suspect]
     Indication: MYELOFIBROSIS
     Dosage: 500 MG DAILY
     Route: 048
     Dates: start: 20080924, end: 20090110
  2. RED BLOOD CELLS [Concomitant]
     Dosage: 2 U, QW
     Dates: start: 20080924, end: 20090105

REACTIONS (4)
  - BLOOD BILIRUBIN INCREASED [None]
  - BLOOD LACTATE DEHYDROGENASE INCREASED [None]
  - DISEASE PROGRESSION [None]
  - PNEUMONIA [None]
